FAERS Safety Report 4723986-4 (Version None)
Quarter: 2005Q3

REPORT INFORMATION
  Report Type: 
  Country: None (occurrence: None)
  Receive Date: 20050721
  Receipt Date: 20050713
  Transmission Date: 20060218
  Serious: Yes (Hospitalization, Other)
  Sender: FDA-Public Use
  Company Number: 2005-07-0900

PATIENT
  Age: 54 Year
  Sex: Female

DRUGS (1)
  1. PEG-INTRON [Suspect]
     Indication: HEPATITIS C
     Dosage: SUBCUTANEOUS
     Route: 058

REACTIONS (4)
  - DEHYDRATION [None]
  - DISEASE RECURRENCE [None]
  - EATING DISORDER [None]
  - TRIGEMINAL NEURALGIA [None]
